FAERS Safety Report 17243794 (Version 1)
Quarter: 2020Q1

REPORT INFORMATION
  Report Type: Spontaneous
  Country: US (occurrence: US)
  Receive Date: 20200107
  Receipt Date: 20200107
  Transmission Date: 20200409
  Serious: Yes (Other)
  Sender: FDA-Public Use
  Company Number: US-ROCHE-2355293

PATIENT
  Sex: Male
  Weight: .82 kg

DRUGS (8)
  1. RIFAMPIN. [Concomitant]
     Active Substance: RIFAMPIN
  2. GENTAMICIN. [Concomitant]
     Active Substance: GENTAMICIN
  3. VANCOMYCIN [Concomitant]
     Active Substance: VANCOMYCIN
  4. INDOMETHACIN [INDOMETACIN] [Concomitant]
     Active Substance: INDOMETHACIN
  5. CLINDAMYCIN. [Concomitant]
     Active Substance: CLINDAMYCIN
  6. AMPICILLIN [Concomitant]
     Active Substance: AMPICILLIN
  7. ACTIVASE [Suspect]
     Active Substance: ALTEPLASE
     Indication: THROMBOLYSIS
     Route: 065
  8. CEFOTAXIME [Concomitant]
     Active Substance: CEFOTAXIME SODIUM

REACTIONS (2)
  - Cerebral haemorrhage [Unknown]
  - Bleeding time prolonged [Unknown]
